FAERS Safety Report 17459322 (Version 1)
Quarter: 2020Q1

REPORT INFORMATION
  Report Type: Spontaneous
  Country: US (occurrence: US)
  Receive Date: 20200225
  Receipt Date: 20200225
  Transmission Date: 20200409
  Serious: Yes (Hospitalization, Other)
  Sender: FDA-Public Use
  Company Number: US-B.I. PHARMACEUTICALS,INC./RIDGEFIELD-2020-US-009850

PATIENT
  Sex: Male

DRUGS (1)
  1. JARDIANCE [Suspect]
     Active Substance: EMPAGLIFLOZIN
     Indication: PRODUCT USED FOR UNKNOWN INDICATION
     Route: 065
     Dates: start: 201903

REACTIONS (5)
  - Obstruction [Unknown]
  - Coronary artery embolism [Unknown]
  - Transient ischaemic attack [Unknown]
  - Cerebral thrombosis [Unknown]
  - Memory impairment [Unknown]

NARRATIVE: CASE EVENT DATE: 201905
